FAERS Safety Report 7322704 (Version 4)
Quarter: 2013Q2

REPORT INFORMATION
  Report Type: Report from Study
  Country: None (occurrence: JP)
  Receive Date: 20100317
  Receipt Date: 20130430
  Transmission Date: 20140414
  Serious: Yes (Death, Other)
  Sender: FDA-Public Use
  Company Number: JP-ROCHE-690960

PATIENT
  Age: 34 Year
  Sex: Female
  Weight: 47 kg

DRUGS (6)
  1. BEVACIZUMAB [Suspect]
     Indication: BRAIN NEOPLASM
     Route: 041
     Dates: start: 20100129, end: 20100212
  2. GLYCERIN [Suspect]
     Indication: PRODUCT USED FOR UNKNOWN INDICATION
     Route: 041
  3. OMEPRAL [Concomitant]
     Route: 041
  4. PREDONINE [Concomitant]
     Route: 041
  5. AMLODIN [Concomitant]
     Route: 048
  6. BLOPRESS [Concomitant]
     Route: 048

REACTIONS (3)
  - Basilar artery occlusion [Fatal]
  - Cardio-respiratory arrest [Unknown]
  - Headache [Unknown]
